FAERS Safety Report 5167943-5 (Version None)
Quarter: 2006Q4

REPORT INFORMATION
  Report Type: 
  Country: None (occurrence: None)
  Receive Date: 20061208
  Receipt Date: 20051101
  Transmission Date: 20070319
  Serious: No
  Sender: FDA-Public Use
  Company Number: US-GLAXOSMITHKLINE-A0580501A

PATIENT
  Sex: Female
  Weight: 181.8 kg

DRUGS (2)
  1. AVANDAMET [Suspect]
     Dosage: 1TAB UNKNOWN
     Route: 048
  2. UNKNOWN [Concomitant]

REACTIONS (3)
  - ABASIA [None]
  - ASTHENIA [None]
  - BLOOD GLUCOSE INCREASED [None]
